FAERS Safety Report 6616315-2 (Version None)
Quarter: 2010Q1

REPORT INFORMATION
  Report Type: 
  Country: None (occurrence: None)
  Receive Date: 20100305
  Receipt Date: 20100223
  Transmission Date: 20100710
  Serious: Yes (Other)
  Sender: FDA-Public Use
  Company Number: HK-WYE-G05634310

PATIENT
  Sex: Female

DRUGS (4)
  1. TEMSIROLIMUS [Suspect]
     Indication: HEPATIC NEOPLASM MALIGNANT NON-RESECTABLE
     Dosage: 30MG ONCE WEEKLY
     Route: 042
     Dates: start: 20100223, end: 20100223
  2. NAVOBAN [Suspect]
     Dosage: DOSE 5MG, FREQUENCY UNKNOWN
     Route: 042
     Dates: start: 20100223, end: 20100223
  3. NIFEDIPINE [Concomitant]
     Indication: HYPERTENSION
  4. PIRITON [Suspect]
     Dosage: DOSE 25MG, FREQUENCY UNSPECIFIED
     Route: 042
     Dates: start: 20100223, end: 20100223

REACTIONS (5)
  - CHEST DISCOMFORT [None]
  - DISCOMFORT [None]
  - DYSPNOEA [None]
  - ELECTROCARDIOGRAM T WAVE INVERSION [None]
  - MYOCARDIAL INFARCTION [None]
